FAERS Safety Report 8129951-1 (Version None)
Quarter: 2012Q1

REPORT INFORMATION
  Report Type: 
  Country: None (occurrence: None)
  Receive Date: 20120210
  Receipt Date: 20120125
  Transmission Date: 20120608
  Serious: Yes (Hospitalization, Other)
  Sender: FDA-Public Use
  Company Number: US-MYLANLABS-2012S1003033

PATIENT
  Sex: Female
  Weight: 74.39 kg

DRUGS (13)
  1. HYDROCHLOROTHIAZIDE [Concomitant]
  2. PLAVIX [Concomitant]
  3. ATENOLOL [Concomitant]
  4. BENICAR [Concomitant]
  5. CRESTOR [Concomitant]
  6. LOVENOX [Concomitant]
  7. COUMADIN [Concomitant]
  8. ASPIRIN [Concomitant]
  9. OCUVITE /01053801/ [Concomitant]
  10. DIGOXIN [Suspect]
     Route: 048
     Dates: start: 20060301, end: 20080601
  11. ALBUTEROL [Concomitant]
  12. ADVAIR DISKUS 100/50 [Concomitant]
  13. FIBERCON [Concomitant]

REACTIONS (53)
  - HYPOACUSIS [None]
  - PAIN IN EXTREMITY [None]
  - SUPRAVENTRICULAR EXTRASYSTOLES [None]
  - ATRIAL FIBRILLATION [None]
  - MASTOIDITIS [None]
  - CARDIOMEGALY [None]
  - IRRITABLE BOWEL SYNDROME [None]
  - COGNITIVE DISORDER [None]
  - COMPUTERISED TOMOGRAM ABNORMAL [None]
  - HEMIPARESIS [None]
  - BREATH SOUNDS ABNORMAL [None]
  - ASTHENIA [None]
  - CARDIAC DISORDER [None]
  - CAROTID ARTERY OCCLUSION [None]
  - HEADACHE [None]
  - FAECAL INCONTINENCE [None]
  - GAIT DISTURBANCE [None]
  - INJURY [None]
  - CHOLESTEATOMA [None]
  - LUNG DISORDER [None]
  - NERVOUS SYSTEM DISORDER [None]
  - DYSARTHRIA [None]
  - WHEEZING [None]
  - ANXIETY [None]
  - ATRIOVENTRICULAR BLOCK [None]
  - CEREBRAL ATROPHY [None]
  - RETINAL ARTERY EMBOLISM [None]
  - CARDIOVASCULAR DISORDER [None]
  - CAROTID ARTERY STENOSIS [None]
  - ILL-DEFINED DISORDER [None]
  - FALL [None]
  - DYSPNOEA [None]
  - DIARRHOEA [None]
  - NUCLEAR MAGNETIC RESONANCE IMAGING ABNORMAL [None]
  - ECONOMIC PROBLEM [None]
  - EYE HAEMORRHAGE [None]
  - ASTHMA [None]
  - CHRONIC OBSTRUCTIVE PULMONARY DISEASE [None]
  - MACULAR DEGENERATION [None]
  - CHEST X-RAY ABNORMAL [None]
  - WEIGHT INCREASED [None]
  - PALPITATIONS [None]
  - HAEMATOCHEZIA [None]
  - EMOTIONAL DISTRESS [None]
  - CEREBROVASCULAR ACCIDENT [None]
  - ARTERIOSCLEROSIS [None]
  - ANAEMIA [None]
  - MUSCULAR WEAKNESS [None]
  - COUGH [None]
  - CONSTIPATION [None]
  - CEREBELLAR INFARCTION [None]
  - PERIPHERAL VASCULAR DISORDER [None]
  - ELECTROCARDIOGRAM ABNORMAL [None]
